FAERS Safety Report 12878027 (Version 2)
Quarter: 2016Q4

REPORT INFORMATION
  Report Type: Spontaneous
  Country: US (occurrence: US)
  Receive Date: 20161024
  Receipt Date: 20161206
  Transmission Date: 20170207
  Serious: Yes (Hospitalization, Other)
  Sender: FDA-Public Use
  Company Number: US-PFIZER INC-2016491353

PATIENT
  Age: 12 Year
  Sex: Male
  Weight: 58 kg

DRUGS (4)
  1. GEODON [Suspect]
     Active Substance: ZIPRASIDONE HYDROCHLORIDE\ZIPRASIDONE MESYLATE
     Indication: AUTISM SPECTRUM DISORDER
     Dosage: 20 MG, DAILY (WITH DINNER)
     Dates: start: 20160912, end: 20161120
  2. ABILIFY [Concomitant]
     Active Substance: ARIPIPRAZOLE
     Dosage: 1 MG, DAILY ( QD WITH BREAKFAST)
  3. CITRUCEL [Concomitant]
     Active Substance: METHYLCELLULOSE (4000 MPA.S)
     Dosage: 1 DF, DAILY
  4. ZOLOFT [Concomitant]
     Active Substance: SERTRALINE HYDROCHLORIDE
     Dosage: 75 MG, DAILY ( QD WITH DINNER)

REACTIONS (8)
  - Hallucination, visual [Recovered/Resolved]
  - Seizure [Unknown]
  - Drug administered to patient of inappropriate age [Recovered/Resolved]
  - Product use issue [Recovered/Resolved]
  - Paranoia [Recovered/Resolved]
  - Abdominal pain [Not Recovered/Not Resolved]
  - Drug dose omission [Recovered/Resolved]
  - Syncope [Unknown]

NARRATIVE: CASE EVENT DATE: 20160912
